FAERS Safety Report 8873296 (Version 1)
Quarter: 2012Q4

REPORT INFORMATION
  Report Type: 
  Country: US (occurrence: US)
  Receive Date: 20121029
  Receipt Date: 20121029
  Transmission Date: 20130627
  Serious: Yes (Other)
  Sender: FDA-Public Use
  Company Number: US-ABBOTT-12P-163-0999840-00

PATIENT
  Age: 50 Year
  Sex: Male

DRUGS (3)
  1. RITONAVIR [Suspect]
     Indication: HIV INFECTION
  2. DIDANOSINE [Suspect]
     Indication: HIV INFECTION
  3. DARUNAVIR [Suspect]
     Indication: HIV INFECTION

REACTIONS (3)
  - Portal hypertension [Recovered/Resolved]
  - Iron deficiency anaemia [Recovering/Resolving]
  - Cryptogenic cirrhosis [Recovered/Resolved]
